FAERS Safety Report 10182263 (Version 9)
Quarter: 2015Q2

REPORT INFORMATION
  Report Type: Report from Study
  Country: GB (occurrence: GB)
  Receive Date: 20140520
  Receipt Date: 20150602
  Transmission Date: 20150821
  Serious: Yes (Hospitalization)
  Sender: FDA-Public Use
  Company Number: GB-ROCHE-1401296

PATIENT
  Age: 65 Year
  Sex: Female
  Weight: 70.9 kg

DRUGS (39)
  1. GENTAMYCIN [Concomitant]
     Active Substance: GENTAMICIN
     Indication: INFECTION
     Route: 042
     Dates: start: 20140530, end: 20140530
  2. COMBIGAN [Concomitant]
     Active Substance: BRIMONIDINE TARTRATE\TIMOLOL MALEATE
     Indication: GLAUCOMA
     Dosage: 1 DROP IN BOTH EYES 12 HOURLY, 2 MG/ML + 5 MG/ML (0.2%/0.5%)
     Route: 061
     Dates: start: 20140207
  3. FOLIC ACID. [Concomitant]
     Active Substance: FOLIC ACID
     Indication: RHEUMATOID ARTHRITIS
     Route: 048
     Dates: end: 20140512
  4. BENDROFLUAZIDE [Concomitant]
     Active Substance: BENDROFLUMETHIAZIDE
     Indication: HYPERTENSION
     Route: 048
     Dates: end: 20140511
  5. BRIMONIDINE [Concomitant]
     Active Substance: BRIMONIDINE\BRIMONIDINE TARTRATE
     Indication: GLAUCOMA
     Dosage: 1 DROP EVERY 12 HRS
     Route: 065
     Dates: end: 20140207
  6. LEVOMEPROMAZINE [Concomitant]
     Active Substance: LEVOMEPROMAZINE
     Indication: AGITATION
     Route: 042
     Dates: start: 20140603, end: 20140607
  7. ORAMORPH SR SUSTAINED RELEASE [Concomitant]
     Active Substance: MORPHINE SULFATE
     Indication: PAIN
     Dosage: 0.5-20 MG/HR
     Route: 042
     Dates: start: 20140518, end: 20140519
  8. METHOTREXATE [Suspect]
     Active Substance: METHOTREXATE
     Indication: RHEUMATOID ARTHRITIS
     Dosage: DOSE BLINDED
     Route: 048
     Dates: start: 20140213, end: 20140512
  9. CODEINE [Concomitant]
     Active Substance: CODEINE
     Indication: PAIN
     Route: 065
     Dates: start: 20140518, end: 20140518
  10. LEVOMEPROMAZINE [Concomitant]
     Active Substance: LEVOMEPROMAZINE
     Indication: ANXIETY
     Route: 065
     Dates: start: 20140530, end: 20140603
  11. CLONIDINE. [Concomitant]
     Active Substance: CLONIDINE
     Indication: AGITATION
     Route: 042
     Dates: start: 20140528, end: 20140606
  12. TOCILIZUMAB [Suspect]
     Active Substance: TOCILIZUMAB
     Route: 042
     Dates: start: 20140313
  13. SULPHASALAZINE [Concomitant]
     Active Substance: SULFASALAZINE
     Indication: RHEUMATOID ARTHRITIS
     Route: 048
     Dates: end: 20140212
  14. HYDROCORTISONE. [Concomitant]
     Active Substance: HYDROCORTISONE
     Route: 061
     Dates: start: 20140220, end: 20140508
  15. FRAGMIN [Concomitant]
     Active Substance: DALTEPARIN SODIUM
     Route: 042
     Dates: start: 20140514, end: 20140517
  16. CLONIDINE. [Concomitant]
     Active Substance: CLONIDINE
     Indication: SEDATION
  17. RANITIDINE [Concomitant]
     Active Substance: RANITIDINE\RANITIDINE HYDROCHLORIDE
     Route: 065
     Dates: start: 20140519
  18. OMEPRAZOLE. [Concomitant]
     Active Substance: OMEPRAZOLE
     Indication: PROPHYLAXIS
     Route: 048
     Dates: start: 20140513, end: 20140514
  19. REMIFENTANIL [Concomitant]
     Active Substance: REMIFENTANIL
     Indication: SEDATION
     Dosage: 0.01-0.5 MCG/KG
     Route: 042
     Dates: start: 201405, end: 20140608
  20. HEPARIN [Concomitant]
     Active Substance: HEPARIN SODIUM
     Route: 042
     Dates: start: 20140518, end: 20140518
  21. MELATONIN [Concomitant]
     Active Substance: MELATONIN
     Route: 065
     Dates: start: 20140601, end: 20140606
  22. PROPOFOL. [Concomitant]
     Active Substance: PROPOFOL
     Indication: SEDATION
     Dosage: 0-400 MG/HR
     Route: 042
     Dates: start: 201405, end: 20140607
  23. METRONIDAZOLE. [Concomitant]
     Active Substance: METRONIDAZOLE
     Route: 065
     Dates: start: 20140602, end: 20140604
  24. FLUCONAZOLE. [Concomitant]
     Active Substance: FLUCONAZOLE
     Route: 042
     Dates: start: 20140514, end: 20140518
  25. TOCILIZUMAB [Suspect]
     Active Substance: TOCILIZUMAB
     Dosage: 10/APR/2014 DATE OF LAST DOSE TO SAE
     Route: 042
     Dates: start: 20140410, end: 20140513
  26. FELODIPINE. [Concomitant]
     Active Substance: FELODIPINE
     Indication: HYPERTENSION
     Route: 048
     Dates: end: 20140511
  27. NOREPINEPHRINE [Concomitant]
     Active Substance: NOREPINEPHRINE\NOREPINEPHRINE BITARTRATE
     Indication: BLOOD PRESSURE
     Dosage: 0.01-1 MCG/KG/M2.
     Route: 042
     Dates: start: 20140503, end: 20140608
  28. SALINE [Concomitant]
     Active Substance: SODIUM CHLORIDE
     Dosage: 2 HOURLY- 6 HOURLY
     Route: 065
     Dates: start: 201405
  29. ORAMORPH SR SUSTAINED RELEASE [Concomitant]
     Active Substance: MORPHINE SULFATE
     Indication: ANXIETY
  30. MIDAZOLAM [Concomitant]
     Active Substance: MIDAZOLAM\MIDAZOLAM HYDROCHLORIDE
     Indication: SEDATION
     Dosage: 0.5-20 MG/HR.
     Route: 042
     Dates: start: 20140528, end: 20140601
  31. TOCILIZUMAB [Suspect]
     Active Substance: TOCILIZUMAB
     Indication: RHEUMATOID ARTHRITIS
     Route: 042
     Dates: start: 20140213
  32. ONDANSETRON [Concomitant]
     Active Substance: ONDANSETRON
     Indication: PAIN
     Route: 048
     Dates: start: 20140531, end: 20140610
  33. ZOMORPH [Concomitant]
     Active Substance: MORPHINE SULFATE
     Indication: SEDATION
     Route: 065
     Dates: start: 20140527, end: 20140618
  34. DALTEPARIN [Concomitant]
     Active Substance: DALTEPARIN
     Indication: THROMBOSIS
     Route: 058
     Dates: start: 201405
  35. CELECOXIB. [Concomitant]
     Active Substance: CELECOXIB
     Indication: RHEUMATOID ARTHRITIS
     Route: 048
  36. INSULIN [Concomitant]
     Active Substance: INSULIN NOS
     Route: 042
     Dates: start: 201405, end: 20140613
  37. ZOPICLONE [Concomitant]
     Active Substance: ZOPICLONE
     Indication: SEDATION
     Route: 048
     Dates: start: 20140516, end: 20140618
  38. GELASPON [Concomitant]
     Route: 042
     Dates: start: 20140529, end: 20140607
  39. CHLORHEXIDINE [Concomitant]
     Active Substance: CHLORHEXIDINE
     Route: 061
     Dates: start: 201405, end: 20140617

REACTIONS (1)
  - Interstitial lung disease [Not Recovered/Not Resolved]

NARRATIVE: CASE EVENT DATE: 20140511
